FAERS Safety Report 19633811 (Version 2)
Quarter: 2022Q1

REPORT INFORMATION
  Report Type: Report from Study
  Country: CO (occurrence: CO)
  Receive Date: 20210729
  Receipt Date: 20220113
  Transmission Date: 20220424
  Serious: Yes (Other)
  Sender: FDA-Public Use
  Company Number: CO-NOVARTISPH-NVSC2021CO168349

PATIENT
  Age: 73 Year
  Sex: Male
  Weight: 65 kg

DRUGS (3)
  1. METFORMIN [Suspect]
     Active Substance: METFORMIN HYDROCHLORIDE
     Indication: Glucose tolerance impaired
     Dosage: UNK
     Route: 048
  2. CARVEDILOL [Suspect]
     Active Substance: CARVEDILOL
     Indication: Platelet aggregation abnormal
     Dosage: 6.25 MG, QD,(5 YEARS AGO)
     Route: 048
  3. ASPIRIN [Concomitant]
     Active Substance: ASPIRIN
     Indication: Coagulopathy
     Dosage: 85 MG, QD, (5 YEARS AGO)
     Route: 048

REACTIONS (3)
  - Disease progression [Unknown]
  - Age-related macular degeneration [Unknown]
  - Off label use [Unknown]

NARRATIVE: CASE EVENT DATE: 20201101
